FAERS Safety Report 21580064 (Version 2)
Quarter: 2022Q4

REPORT INFORMATION
  Report Type: Spontaneous
  Country: US (occurrence: None)
  Receive Date: 20221110
  Receipt Date: 20221221
  Transmission Date: 20230113
  Serious: No
  Sender: FDA-Public Use
  Company Number: 2022A351093

PATIENT
  Age: 949 Month
  Sex: Male
  Weight: 77.1 kg

DRUGS (2)
  1. FASENRA [Suspect]
     Active Substance: BENRALIZUMAB
     Indication: Asthma
     Route: 058
     Dates: start: 202206
  2. FASENRA [Suspect]
     Active Substance: BENRALIZUMAB
     Indication: Asthma
     Dosage: 5TH FASENRA INJECTION
     Route: 058
     Dates: start: 20221004

REACTIONS (9)
  - Feeling abnormal [Unknown]
  - Injection site pain [Unknown]
  - Asthma [Unknown]
  - Wheezing [Unknown]
  - Blood pressure decreased [Unknown]
  - Blood pressure fluctuation [Unknown]
  - Renal cyst [Unknown]
  - Dizziness [Unknown]
  - Off label use [Unknown]

NARRATIVE: CASE EVENT DATE: 20220601
